FAERS Safety Report 21798630 (Version 1)
Quarter: 2022Q4

REPORT INFORMATION
  Report Type: Spontaneous
  Country: ES (occurrence: ES)
  Receive Date: 20221230
  Receipt Date: 20221230
  Transmission Date: 20230113
  Serious: No
  Sender: FDA-Public Use
  Company Number: ES-ALKEM LABORATORIES LIMITED-ES-ALKEM-2022-11570

PATIENT
  Age: 34 Week
  Sex: Female
  Weight: 1.95 kg

DRUGS (1)
  1. SIROLIMUS [Suspect]
     Active Substance: SIROLIMUS
     Indication: Congenital musculoskeletal disorder of limbs
     Dosage: 0.8 MILLIGRAM/SQ. METER, BID ( 0.8 MG/M2 /12 H)
     Route: 065

REACTIONS (3)
  - Off label use [Unknown]
  - Overdose [Unknown]
  - Therapy partial responder [Unknown]
